FAERS Safety Report 8125606-8 (Version None)
Quarter: 2012Q1

REPORT INFORMATION
  Report Type: 
  Country: None (occurrence: None)
  Receive Date: 20120209
  Receipt Date: 20120207
  Transmission Date: 20120608
  Serious: Yes (Disabling)
  Sender: FDA-Public Use
  Company Number: GB-PFIZER INC-2011305983

PATIENT
  Age: 53 Year
  Sex: Female

DRUGS (2)
  1. MORPHINE [Concomitant]
     Dosage: SACHETS
  2. LYRICA [Suspect]
     Indication: NEURALGIA
     Dosage: 50 MG, 2X/DAY
     Route: 048
     Dates: start: 20111101

REACTIONS (5)
  - DEPRESSED MOOD [None]
  - CHEST DISCOMFORT [None]
  - DYSPNOEA [None]
  - SUICIDAL IDEATION [None]
  - DRUG ADMINISTRATION ERROR [None]
